FAERS Safety Report 13352093 (Version 1)
Quarter: 2017Q1

REPORT INFORMATION
  Report Type: Spontaneous
  Country: US (occurrence: US)
  Receive Date: 20170320
  Receipt Date: 20170320
  Transmission Date: 20170429
  Serious: No
  Sender: FDA-Public Use
  Company Number: US-SA-2016SA111973

PATIENT
  Age: 58 Year
  Sex: Female

DRUGS (1)
  1. NASACORT ALLERGY 24HR [Suspect]
     Active Substance: TRIAMCINOLONE ACETONIDE
     Indication: HYPERSENSITIVITY
     Route: 045
     Dates: start: 20160610, end: 20160610

REACTIONS (6)
  - Rhinorrhoea [Unknown]
  - Rhinalgia [Unknown]
  - Condition aggravated [Unknown]
  - Nasal congestion [Unknown]
  - Dyspnoea [Unknown]
  - Nasal discomfort [Unknown]
